FAERS Safety Report 4301128-7 (Version None)
Quarter: 2004Q1

REPORT INFORMATION
  Report Type: 
  Country: None (occurrence: None)
  Receive Date: 20040219
  Receipt Date: 20040213
  Transmission Date: 20041129
  Serious: Yes (Hospitalization)
  Sender: FDA-Public Use
  Company Number: RB-509-2004

PATIENT
  Age: 6 Day
  Sex: Male

DRUGS (3)
  1. BUPRENORPHINE HYDROCHLORIDE [Suspect]
     Indication: DRUG ABUSER
     Dosage: PO
     Route: 048
     Dates: start: 19960125, end: 19960514
  2. BUPRENORPHINE HYDROCHLORIDE [Suspect]
     Indication: DRUG ABUSER
     Dosage: SL
     Route: 060
  3. HEROIN [Suspect]
     Indication: DRUG USE FOR UNKNOWN INDICATION
     Dosage: UNK

REACTIONS (6)
  - APGAR SCORE LOW [None]
  - CLONUS [None]
  - DEHYDRATION [None]
  - DRUG WITHDRAWAL SYNDROME NEONATAL [None]
  - INTENTIONAL MISUSE [None]
  - MATERNAL DRUGS AFFECTING FOETUS [None]
